FAERS Safety Report 9961222 (Version 1)
Quarter: 2014Q1

REPORT INFORMATION
  Report Type: Report from Study
  Country: US (occurrence: US)
  Receive Date: 20140305
  Receipt Date: 20140305
  Transmission Date: 20141002
  Serious: Yes (Hospitalization)
  Sender: FDA-Public Use
  Company Number: PHEH2013US026778

PATIENT
  Age: 65 Year
  Sex: Female
  Weight: 175 kg

DRUGS (1)
  1. AFINITOR [Suspect]
     Indication: BREAST NEOPLASM
     Dosage: 10 MG DAILY
     Route: 048
     Dates: start: 20130426, end: 20130923

REACTIONS (2)
  - Fall [Unknown]
  - Hip fracture [Unknown]
